FAERS Safety Report 5076903-4 (Version None)
Quarter: 2006Q3

REPORT INFORMATION
  Report Type: 
  Country: None (occurrence: None)
  Receive Date: 20060810
  Receipt Date: 20060802
  Transmission Date: 20061208
  Serious: Yes (Death, Hospitalization)
  Sender: FDA-Public Use
  Company Number: US-ROCHE-457853

PATIENT
  Age: 61 Year
  Sex: Male

DRUGS (5)
  1. INTERFERON ALFA [Suspect]
     Dosage: FROM DAYS ONE TO FIVE.
     Route: 058
  2. PROLEUKIN [Suspect]
     Dosage: FROM DAYS ONE TO FOUR.
     Route: 042
  3. DACARBAZINE [Suspect]
     Dosage: ON DAY ONE.
     Route: 065
  4. VINBLASTINE [Suspect]
     Dosage: FROM DAYS ONE TO FIVE.
     Route: 042
  5. CISPLATIN [Suspect]
     Dosage: FROM DAYS ONE TO FOUR.
     Route: 042

REACTIONS (13)
  - ASPARTATE AMINOTRANSFERASE INCREASED [None]
  - BLOOD ALBUMIN DECREASED [None]
  - CARDIAC ARREST [None]
  - ENCEPHALOPATHY [None]
  - GENERAL PHYSICAL HEALTH DETERIORATION [None]
  - HYPERPHOSPHATAEMIA [None]
  - HYPERURICAEMIA [None]
  - HYPOCALCAEMIA [None]
  - METABOLIC ACIDOSIS [None]
  - RENAL FAILURE [None]
  - TUMOUR LYSIS SYNDROME [None]
  - URINE OUTPUT DECREASED [None]
  - WEIGHT INCREASED [None]
